FAERS Safety Report 4346070-0 (Version None)
Quarter: 2004Q1

REPORT INFORMATION
  Report Type: 
  Country: None (occurrence: None)
  Receive Date: 20040325
  Receipt Date: 20040220
  Transmission Date: 20041129
  Serious: No
  Sender: FDA-Public Use
  Company Number: USA040156297

PATIENT
  Age: 80 Year
  Sex: Female

DRUGS (4)
  1. FORTEO [Suspect]
     Indication: OSTEOPOROSIS
     Dates: start: 20031217
  2. PREMARIN [Concomitant]
  3. PROVERA [Concomitant]
  4. CIPRO [Concomitant]

REACTIONS (7)
  - ASTHENIA [None]
  - DIZZINESS [None]
  - HEADACHE [None]
  - INJECTION SITE IRRITATION [None]
  - MUSCLE CRAMP [None]
  - NAUSEA [None]
  - VAGINAL HAEMORRHAGE [None]
